FAERS Safety Report 21498012 (Version 1)
Quarter: 2022Q4

REPORT INFORMATION
  Report Type: Report from Study
  Country: EG (occurrence: EG)
  Receive Date: 20221024
  Receipt Date: 20221024
  Transmission Date: 20230113
  Serious: Yes (Hospitalization, Other)
  Sender: FDA-Public Use
  Company Number: EG-AMGEN-EGYSL2022180184

PATIENT
  Age: 64 Year
  Sex: Male

DRUGS (2)
  1. VECTIBIX [Suspect]
     Active Substance: PANITUMUMAB
     Indication: Colorectal cancer
     Dosage: UNK, Q2WK (DOSE EVERY OTHER WEEK)
     Route: 065
     Dates: start: 20220417
  2. VECTIBIX [Suspect]
     Active Substance: PANITUMUMAB
     Dosage: THE PRESCRIBED CHEMOTHERAPY DOSE TO 50%
     Route: 065
     Dates: start: 2022

REACTIONS (8)
  - Blood albumin decreased [Recovering/Resolving]
  - Mineral deficiency [Recovering/Resolving]
  - Blood potassium decreased [Recovering/Resolving]
  - Blood calcium decreased [Recovering/Resolving]
  - Diarrhoea [Recovering/Resolving]
  - Vomiting [Recovering/Resolving]
  - Drug intolerance [Unknown]
  - Illness [Recovering/Resolving]

NARRATIVE: CASE EVENT DATE: 20220101
